FAERS Safety Report 6588046-9 (Version None)
Quarter: 2010Q1

REPORT INFORMATION
  Report Type: 
  Country: None (occurrence: None)
  Receive Date: 20100218
  Receipt Date: 20071024
  Transmission Date: 20100710
  Serious: Yes (Other)
  Sender: FDA-Public Use
  Company Number: PHBS2007BR18074

PATIENT
  Age: 20 Year
  Sex: Female

DRUGS (4)
  1. GLEEVEC [Suspect]
     Route: 048
  2. GLEEVEC [Suspect]
     Dosage: 800 MG/D
     Route: 048
     Dates: start: 20070901, end: 20071001
  3. METFORMIN HYDROCHLORIDE [Concomitant]
     Route: 065
  4. SIBUTRAMINE [Concomitant]
     Route: 065

REACTIONS (9)
  - DEPRESSION [None]
  - DRUG EXPOSURE DURING PREGNANCY [None]
  - INSULIN RESISTANCE [None]
  - MENSTRUATION IRREGULAR [None]
  - NAUSEA [None]
  - NORMAL NEWBORN [None]
  - OBESITY [None]
  - POLYCYSTIC OVARIES [None]
  - WEIGHT INCREASED [None]
